FAERS Safety Report 8896524 (Version 1)
Quarter: 2012Q4

REPORT INFORMATION
  Report Type: 
  Country: US (occurrence: US)
  Receive Date: 20121108
  Receipt Date: 20121108
  Transmission Date: 20130627
  Serious: No
  Sender: FDA-Public Use
  Company Number: US-AMGEN-USASP2012026487

PATIENT
  Age: 50 Year
  Sex: Male
  Weight: 83.9 kg

DRUGS (3)
  1. ENBREL [Suspect]
     Indication: PRODUCT USED FOR UNKNOWN INDICATION
     Dosage: 50 mg, qwk
     Route: 058
  2. FLUTICASONE [Concomitant]
     Dosage: 50 mug, UNK
  3. DOVONEX [Concomitant]
     Dosage: 0.005 UNK, UNK

REACTIONS (1)
  - Sinusitis [Unknown]
